FAERS Safety Report 25079445 (Version 1)
Quarter: 2025Q1

REPORT INFORMATION
  Report Type: Spontaneous
  Country: FR (occurrence: FR)
  Receive Date: 20250314
  Receipt Date: 20250314
  Transmission Date: 20250408
  Serious: Yes (Congenital Anomaly)
  Sender: PFIZER
  Company Number: FR-PFIZER INC-202500055394

PATIENT
  Age: 2 Year
  Sex: Male

DRUGS (1)
  1. DOSTINEX [Suspect]
     Active Substance: CABERGOLINE
     Dosage: UNK, WEEKLY
     Route: 064

REACTIONS (6)
  - Maternal exposure during pregnancy [Unknown]
  - Coarctation of the aorta [Unknown]
  - Hypospadias [Unknown]
  - Penile curvature [Unknown]
  - Body height abnormal [Unknown]
  - Neurodevelopmental disorder [Unknown]
